FAERS Safety Report 15158760 (Version 2)
Quarter: 2018Q3

REPORT INFORMATION
  Report Type: Spontaneous
  Country: US (occurrence: US)
  Receive Date: 20180718
  Receipt Date: 20180911
  Transmission Date: 20181010
  Serious: No
  Sender: FDA-Public Use
  Company Number: US-SA-2018SA192194

PATIENT
  Age: 71 Year
  Sex: Female

DRUGS (2)
  1. PRALUENT [Suspect]
     Active Substance: ALIROCUMAB
     Dosage: 150 MG, QOW
     Route: 058
     Dates: start: 20180608
  2. PRALUENT [Suspect]
     Active Substance: ALIROCUMAB
     Dosage: 150 MG, QOW
     Route: 058
     Dates: start: 20180608

REACTIONS (5)
  - Insomnia [Unknown]
  - Myalgia [Unknown]
  - Decreased activity [Unknown]
  - Condition aggravated [Unknown]
  - Bone pain [Unknown]

NARRATIVE: CASE EVENT DATE: 201808
